FAERS Safety Report 7755027-9 (Version None)
Quarter: 2011Q3

REPORT INFORMATION
  Report Type: 
  Country: None (occurrence: None)
  Receive Date: 20110916
  Receipt Date: 20110826
  Transmission Date: 20111222
  Serious: Yes (Other)
  Sender: FDA-Public Use
  Company Number: US-JNJCP-30000069256

PATIENT
  Age: 29 Year
  Sex: Female
  Weight: 91 kg

DRUGS (1)
  1. C+C PERSA-GEL  MAX STR ACNE TREATMENT USA CCPGATUS [Suspect]
     Dosage: TWO DABS APPLIED WITH A Q-TIP, ONCE
     Route: 061
     Dates: start: 20110811, end: 20110811

REACTIONS (4)
  - APPLICATION SITE DRYNESS [None]
  - APPLICATION SITE SWELLING [None]
  - APPLICATION SITE ERYTHEMA [None]
  - EYELID OEDEMA [None]
